FAERS Safety Report 6748161-3 (Version None)
Quarter: 2010Q2

REPORT INFORMATION
  Report Type: 
  Country: None (occurrence: None)
  Receive Date: 20100531
  Receipt Date: 20100525
  Transmission Date: 20101027
  Serious: Yes (Other)
  Sender: FDA-Public Use
  Company Number: US-BRISTOL-MYERS SQUIBB COMPANY-15121676

PATIENT
  Age: 61 Year
  Sex: Female

DRUGS (4)
  1. COUMADIN [Suspect]
  2. XANAX [Suspect]
     Dosage: TAB
  3. MIRALAX [Suspect]
     Indication: CONSTIPATION
     Route: 048
  4. TEMAZEPAM [Suspect]

REACTIONS (4)
  - NAUSEA [None]
  - PAIN [None]
  - PRESYNCOPE [None]
  - RECTAL SPASM [None]
